FAERS Safety Report 13182772 (Version 4)
Quarter: 2022Q1

REPORT INFORMATION
  Report Type: Spontaneous
  Country: US (occurrence: US)
  Receive Date: 20170203
  Receipt Date: 20220311
  Transmission Date: 20220423
  Serious: No
  Sender: FDA-Public Use
  Company Number: US-PFIZER INC-2017045140

PATIENT
  Age: 56 Year
  Sex: Male
  Weight: 98.88 kg

DRUGS (1)
  1. TOVIAZ [Suspect]
     Active Substance: FESOTERODINE FUMARATE
     Indication: Bladder discomfort
     Dosage: 4 MG, 1X/DAY

REACTIONS (1)
  - Pollakiuria [Unknown]
